FAERS Safety Report 11475765 (Version 3)
Quarter: 2016Q2

REPORT INFORMATION
  Report Type: Report from Study
  Country: IE (occurrence: IE)
  Receive Date: 20150909
  Receipt Date: 20160429
  Transmission Date: 20160815
  Serious: Yes (Hospitalization, Other)
  Sender: FDA-Public Use
  Company Number: IE-EMD SERONO-8041190

PATIENT
  Age: 39 Year
  Sex: Female

DRUGS (7)
  1. SAIZEN [Suspect]
     Active Substance: SOMATROPIN
     Indication: BLOOD GROWTH HORMONE ABNORMAL
     Dosage: 0.6 (UNSPECIFIED UNIT)
     Route: 058
     Dates: start: 20150522, end: 20151003
  2. SAIZEN [Suspect]
     Active Substance: SOMATROPIN
     Route: 058
     Dates: start: 20151004
  3. EVOREL CONTI [Concomitant]
     Indication: PRODUCT USED FOR UNKNOWN INDICATION
  4. HYDROCORTISONE. [Concomitant]
     Active Substance: HYDROCORTISONE
     Indication: PRODUCT USED FOR UNKNOWN INDICATION
  5. SAIZEN [Suspect]
     Active Substance: SOMATROPIN
     Indication: HYPOPITUITARISM
     Route: 058
     Dates: start: 20150206, end: 20150521
  6. SAIZEN [Suspect]
     Active Substance: SOMATROPIN
     Dosage: MONDAY TO FRIDAY
     Route: 058
  7. THYROX [Concomitant]
     Indication: PRODUCT USED FOR UNKNOWN INDICATION
     Dosage: 100 (UNSPECIFIED UNITS)

REACTIONS (4)
  - Pneumonia [Recovered/Resolved]
  - Sleep apnoea syndrome [Unknown]
  - Headache [Not Recovered/Not Resolved]
  - Benign intracranial hypertension [Unknown]

NARRATIVE: CASE EVENT DATE: 201503
